FAERS Safety Report 5315453-4 (Version None)
Quarter: 2007Q2

REPORT INFORMATION
  Report Type: 
  Country: None (occurrence: None)
  Receive Date: 20070503
  Receipt Date: 20070423
  Transmission Date: 20071010
  Serious: Yes (Life-Threatening)
  Sender: FDA-Public Use
  Company Number: TW-JNJFOC-20070307034

PATIENT
  Age: 47 Year
  Sex: Female

DRUGS (2)
  1. NIZORAL [Suspect]
     Route: 048
  2. NIZORAL [Suspect]
     Indication: SKIN INFECTION
     Route: 048

REACTIONS (1)
  - HEPATIC FUNCTION ABNORMAL [None]
